FAERS Safety Report 13826435 (Version 4)
Quarter: 2019Q1

REPORT INFORMATION
  Report Type: Report from Study
  Country: US (occurrence: US)
  Receive Date: 20170802
  Receipt Date: 20190108
  Transmission Date: 20190417
  Serious: Yes (Other)
  Sender: FDA-Public Use
  Company Number: US-JAZZ-2017-US-008884

PATIENT
  Sex: Female

DRUGS (1)
  1. XYREM [Suspect]
     Active Substance: SODIUM OXYBATE
     Indication: NARCOLEPSY
     Dosage: 3 G, BID
     Route: 048
     Dates: start: 200904

REACTIONS (10)
  - Somnolence [Unknown]
  - Intentional product use issue [Unknown]
  - Product preparation issue [Unknown]
  - Accident [Recovered/Resolved]
  - Injury [Unknown]
  - Anxiety [Not Recovered/Not Resolved]
  - Surgery [Unknown]
  - Suicidal ideation [Not Recovered/Not Resolved]
  - Back pain [Not Recovered/Not Resolved]
  - Depression [Not Recovered/Not Resolved]
